FAERS Safety Report 5636007-6 (Version None)
Quarter: 2008Q1

REPORT INFORMATION
  Report Type: 
  Country: None (occurrence: None)
  Receive Date: 20080225
  Receipt Date: 20080218
  Transmission Date: 20080703
  Serious: Yes (Hospitalization)
  Sender: FDA-Public Use
  Company Number: SG-RB-000033-08

PATIENT
  Age: 49 Year
  Sex: Male

DRUGS (1)
  1. SUBUTEX [Suspect]
     Dosage: DOSAGE AND FREQUENCY UNKNOWN
     Route: 042

REACTIONS (10)
  - ABASIA [None]
  - ASTHENIA [None]
  - COMMUNICATION DISORDER [None]
  - DYSPHAGIA [None]
  - MUSCLE SPASMS [None]
  - MUSCLE TIGHTNESS [None]
  - MUSCULOSKELETAL STIFFNESS [None]
  - PYREXIA [None]
  - SUBSTANCE ABUSE [None]
  - TETANUS [None]
